FAERS Safety Report 17264527 (Version 1)
Quarter: 2020Q1

REPORT INFORMATION
  Report Type: Spontaneous
  Country: US (occurrence: US)
  Receive Date: 20200113
  Receipt Date: 20200113
  Transmission Date: 20200409
  Serious: No
  Sender: FDA-Public Use
  Company Number: US-SA-2020SA003144

PATIENT
  Age: 63 Year
  Sex: Female

DRUGS (2)
  1. DUPIXENT [Suspect]
     Active Substance: DUPILUMAB
     Dosage: 200 MG, QOW
     Route: 058
  2. AUVI-Q [Concomitant]
     Active Substance: EPINEPHRINE

REACTIONS (5)
  - Renal mass [Unknown]
  - Product use issue [Unknown]
  - Cardiac disorder [Unknown]
  - Pulmonary mass [Unknown]
  - Food allergy [Unknown]

NARRATIVE: CASE EVENT DATE: 201912
